FAERS Safety Report 9648806 (Version 2)
Quarter: 2013Q4

REPORT INFORMATION
  Report Type: Report from Study
  Country: US (occurrence: US)
  Receive Date: 20131028
  Receipt Date: 20131028
  Transmission Date: 20140711
  Serious: Yes (Hospitalization, Other)
  Sender: FDA-Public Use
  Company Number: US-ABBVIE-13P-163-1110287-00

PATIENT
  Age: 52 Year
  Sex: Female
  Weight: 61.74 kg

DRUGS (10)
  1. HUMIRA [Suspect]
     Indication: RHEUMATOID ARTHRITIS
     Dates: start: 201105, end: 201109
  2. RIFIBUTIN [Concomitant]
     Indication: CROHN^S DISEASE
     Dates: start: 1987
  3. PREDNISONE [Concomitant]
     Indication: PRODUCT USED FOR UNKNOWN INDICATION
  4. NORTRIPTYLINE [Concomitant]
     Indication: HEADACHE
     Dates: start: 2005
  5. OMEPRAZOLE [Concomitant]
     Indication: DYSPEPSIA
     Dates: start: 2005
  6. VITAMIN D [Concomitant]
     Indication: PRODUCT USED FOR UNKNOWN INDICATION
  7. VITAMIN B12 SHOT [Concomitant]
     Indication: PRODUCT USED FOR UNKNOWN INDICATION
     Dates: start: 1987
  8. ALENDRONATE [Concomitant]
     Indication: OSTEOPENIA
     Dates: start: 2008
  9. METHOTREXATE [Concomitant]
     Indication: RHEUMATOID ARTHRITIS
     Dates: start: 2010
  10. FOLIC ACID [Concomitant]
     Indication: PRODUCT USED FOR UNKNOWN INDICATION
     Dates: start: 2010

REACTIONS (6)
  - Meningioma benign [Recovered/Resolved]
  - Hypoaesthesia [Recovered/Resolved]
  - Convulsion [Recovered/Resolved]
  - Basal cell carcinoma [Not Recovered/Not Resolved]
  - Arthralgia [Not Recovered/Not Resolved]
  - Osteomyelitis [Recovered/Resolved]
